FAERS Safety Report 20988178 (Version 2)
Quarter: 2022Q2

REPORT INFORMATION
  Report Type: Spontaneous
  Country: US (occurrence: US)
  Receive Date: 20220621
  Receipt Date: 20220622
  Transmission Date: 20220720
  Serious: No
  Sender: FDA-Public Use
  Company Number: US-PFIZER INC-202200851048

PATIENT
  Sex: Female

DRUGS (1)
  1. PAXLOVID [Suspect]
     Active Substance: NIRMATRELVIR\RITONAVIR
     Indication: COVID-19 treatment
     Dosage: 2 OF THE WHITE AND 2 OF THE PINK, 2 IN THE MORNING AND 2 AT NIGHT
     Dates: start: 20220616

REACTIONS (1)
  - Product dose confusion [Unknown]
